FAERS Safety Report 21088570 (Version 1)
Quarter: 2022Q3

REPORT INFORMATION
  Report Type: Spontaneous
  Country: US (occurrence: US)
  Receive Date: 20220715
  Receipt Date: 20220715
  Transmission Date: 20221027
  Serious: Yes (Hospitalization)
  Sender: FDA-Public Use
  Company Number: US-FreseniusKabi-FK202209803

PATIENT
  Age: 30 Year
  Sex: Male

DRUGS (25)
  1. METHYLPREDNISOLONE [Suspect]
     Active Substance: METHYLPREDNISOLONE
     Indication: Glomerulosclerosis
     Route: 042
  2. METHYLPREDNISOLONE [Suspect]
     Active Substance: METHYLPREDNISOLONE
     Indication: Lupus nephritis
  3. METHYLPREDNISOLONE [Suspect]
     Active Substance: METHYLPREDNISOLONE
     Indication: Mixed connective tissue disease
  4. METHYLPREDNISOLONE [Suspect]
     Active Substance: METHYLPREDNISOLONE
     Indication: Dermatomyositis
  5. METHYLPREDNISOLONE [Suspect]
     Active Substance: METHYLPREDNISOLONE
     Indication: Systemic lupus erythematosus
  6. PREDNISONE [Suspect]
     Active Substance: PREDNISONE
     Indication: Glomerulosclerosis
  7. PREDNISONE [Suspect]
     Active Substance: PREDNISONE
     Indication: Lupus nephritis
  8. PREDNISONE [Suspect]
     Active Substance: PREDNISONE
     Indication: Mixed connective tissue disease
  9. PREDNISONE [Suspect]
     Active Substance: PREDNISONE
     Indication: Dermatomyositis
  10. PREDNISONE [Suspect]
     Active Substance: PREDNISONE
     Indication: Systemic lupus erythematosus
  11. LISINOPRIL [Concomitant]
     Active Substance: LISINOPRIL
     Indication: Glomerulosclerosis
  12. LISINOPRIL [Concomitant]
     Active Substance: LISINOPRIL
     Indication: Lupus nephritis
  13. LISINOPRIL [Concomitant]
     Active Substance: LISINOPRIL
     Indication: Mixed connective tissue disease
  14. LISINOPRIL [Concomitant]
     Active Substance: LISINOPRIL
     Indication: Dermatomyositis
  15. LISINOPRIL [Concomitant]
     Active Substance: LISINOPRIL
     Indication: Systemic lupus erythematosus
  16. HYDROXYCHLOROQUINE [Concomitant]
     Active Substance: HYDROXYCHLOROQUINE
     Indication: Glomerulosclerosis
  17. HYDROXYCHLOROQUINE [Concomitant]
     Active Substance: HYDROXYCHLOROQUINE
     Indication: Lupus nephritis
  18. HYDROXYCHLOROQUINE [Concomitant]
     Active Substance: HYDROXYCHLOROQUINE
     Indication: Mixed connective tissue disease
  19. HYDROXYCHLOROQUINE [Concomitant]
     Active Substance: HYDROXYCHLOROQUINE
     Indication: Dermatomyositis
  20. HYDROXYCHLOROQUINE [Concomitant]
     Active Substance: HYDROXYCHLOROQUINE
     Indication: Systemic lupus erythematosus
  21. BUMETANIDE [Concomitant]
     Active Substance: BUMETANIDE
     Indication: Glomerulosclerosis
  22. BUMETANIDE [Concomitant]
     Active Substance: BUMETANIDE
     Indication: Lupus nephritis
  23. BUMETANIDE [Concomitant]
     Active Substance: BUMETANIDE
     Indication: Mixed connective tissue disease
  24. BUMETANIDE [Concomitant]
     Active Substance: BUMETANIDE
     Indication: Dermatomyositis
  25. BUMETANIDE [Concomitant]
     Active Substance: BUMETANIDE
     Indication: Systemic lupus erythematosus

REACTIONS (2)
  - Diabetic hyperosmolar coma [Unknown]
  - Hyperglycaemia [Unknown]
